FAERS Safety Report 8818620 (Version 1)
Quarter: 2012Q4

REPORT INFORMATION
  Report Type: 
  Country: US (occurrence: US)
  Receive Date: 20121001
  Receipt Date: 20121001
  Transmission Date: 20130627
  Serious: Yes (Other)
  Sender: FDA-Public Use
  Company Number: US-PFIZER INC-2012241725

PATIENT
  Sex: Male

DRUGS (2)
  1. NEURONTIN [Suspect]
     Dosage: UNK
     Route: 048
  2. LYRICA [Suspect]
     Indication: PAIN
     Dosage: UNK
     Route: 048

REACTIONS (5)
  - Dysstasia [Unknown]
  - Fall [Unknown]
  - Somnolence [Unknown]
  - Decreased appetite [Unknown]
  - Pain [Unknown]
